FAERS Safety Report 8058598-0 (Version None)
Quarter: 2012Q1

REPORT INFORMATION
  Report Type: 
  Country: None (occurrence: None)
  Receive Date: 20120120
  Receipt Date: 20120110
  Transmission Date: 20120608
  Serious: Yes (Death)
  Sender: FDA-Public Use
  Company Number: FR-JNJFOC-20110610911

PATIENT
  Age: 56 Year
  Sex: Female
  Weight: 65 kg

DRUGS (12)
  1. IMOVANE [Concomitant]
     Indication: INSOMNIA
     Route: 048
     Dates: start: 20110527
  2. ISENTRESS [Suspect]
     Route: 065
     Dates: start: 20110513, end: 20110619
  3. TRIMETHOPRIM + SULFAMETHOXAZOLE [Suspect]
     Route: 065
     Dates: start: 20110414
  4. DARUNAVIR ETHANOLATE [Suspect]
     Indication: HIV INFECTION
     Route: 048
     Dates: start: 20110429, end: 20110504
  5. DARUNAVIR ETHANOLATE [Suspect]
     Route: 048
     Dates: start: 20110513, end: 20110619
  6. NORVIR [Suspect]
     Route: 065
     Dates: start: 20110513, end: 20110619
  7. ACETAMINOPHEN [Concomitant]
     Indication: PARAESTHESIA
     Route: 048
     Dates: start: 20110527
  8. NORVIR [Suspect]
     Indication: HIV INFECTION
     Route: 065
     Dates: start: 20110429, end: 20110504
  9. ATARAX [Concomitant]
     Indication: PRURIGO
     Route: 048
     Dates: start: 20110328
  10. ISENTRESS [Suspect]
     Indication: HIV INFECTION
     Route: 065
     Dates: start: 20110429, end: 20110504
  11. TRIMETHOPRIM + SULFAMETHOXAZOLE [Suspect]
     Indication: OPPORTUNISTIC INFECTION PROPHYLAXIS
     Route: 065
     Dates: end: 20110620
  12. DEXERYL [Concomitant]
     Indication: PRURIGO
     Route: 061
     Dates: start: 20110328

REACTIONS (2)
  - MULTI-ORGAN FAILURE [None]
  - DRUG RASH WITH EOSINOPHILIA AND SYSTEMIC SYMPTOMS [None]
